FAERS Safety Report 13552861 (Version 1)
Quarter: 2017Q2

REPORT INFORMATION
  Report Type: Spontaneous
  Country: US (occurrence: US)
  Receive Date: 20170516
  Receipt Date: 20170516
  Transmission Date: 20170830
  Serious: Yes (Hospitalization)
  Sender: FDA-Public Use
  Company Number: None

PATIENT
  Age: 71 Year
  Sex: Female

DRUGS (1)
  1. ENBREL [Suspect]
     Active Substance: ETANERCEPT
     Indication: MALAISE
     Route: 058
     Dates: start: 20161018, end: 20170512

REACTIONS (3)
  - Blood pressure increased [None]
  - Disturbance in attention [None]
  - Blood creatinine increased [None]

NARRATIVE: CASE EVENT DATE: 20170512
